FAERS Safety Report 4481030-0 (Version None)
Quarter: 2004Q4

REPORT INFORMATION
  Report Type: 
  Country: None (occurrence: None)
  Receive Date: 20041020
  Receipt Date: 20041020
  Transmission Date: 20050328
  Serious: Yes (Life-Threatening, Hospitalization)
  Sender: FDA-Public Use
  Company Number: None

PATIENT
  Age: 49 Year
  Sex: Male
  Weight: 133.8111 kg

DRUGS (2)
  1. VIOXX [Suspect]
     Indication: ARTHRITIS
     Dosage: 25 MG 1X DA
     Dates: start: 19910101
  2. VIOXX [Suspect]
     Indication: PAIN
     Dosage: 25 MG 1X DA
     Dates: start: 19910101

REACTIONS (1)
  - ACUTE MYOCARDIAL INFARCTION [None]
